FAERS Safety Report 14022471 (Version 7)
Quarter: 2019Q4

REPORT INFORMATION
  Report Type: Report from Study
  Country: US (occurrence: US)
  Receive Date: 20170929
  Receipt Date: 20191126
  Transmission Date: 20200122
  Serious: Yes (Other)
  Sender: FDA-Public Use
  Company Number: PHHY2017US088068

PATIENT
  Age: 41 Year
  Sex: Female

DRUGS (3)
  1. GILENYA [Suspect]
     Active Substance: FINGOLIMOD HYDROCHLORIDE
     Indication: MULTIPLE SCLEROSIS
     Dosage: UNK, QD
     Route: 048
  2. NORETHINDRONE ACETATE AND ETHINYL ESTRADIOL [Concomitant]
     Active Substance: ETHINYL ESTRADIOL\NORETHINDRONE ACETATE
     Indication: INSOMNIA
     Dosage: UNK
     Route: 065
     Dates: start: 20170717
  3. ESCITALOPRAM [Concomitant]
     Active Substance: ESCITALOPRAM OXALATE
     Indication: ANXIETY
     Dosage: UNK
     Route: 065
     Dates: start: 20170726

REACTIONS (20)
  - Hypotension [Recovered/Resolved]
  - Fatigue [Recovered/Resolved]
  - Blood pressure increased [Recovered/Resolved]
  - Vision blurred [Unknown]
  - Low density lipoprotein increased [Unknown]
  - Constipation [Recovered/Resolved]
  - Vertigo [Recovered/Resolved]
  - Constipation [Unknown]
  - Lymphocyte count decreased [Unknown]
  - Pain in extremity [Unknown]
  - Vulvovaginal candidiasis [Recovered/Resolved]
  - Disturbance in attention [Unknown]
  - Paraesthesia [Unknown]
  - Vertigo positional [Unknown]
  - Headache [Recovered/Resolved]
  - Band sensation [Recovered/Resolved]
  - White blood cell count decreased [Unknown]
  - Dry eye [Unknown]
  - Tremor [Unknown]
  - Restless legs syndrome [Unknown]

NARRATIVE: CASE EVENT DATE: 20170411
